FAERS Safety Report 14885588 (Version 1)
Quarter: 2018Q2

REPORT INFORMATION
  Report Type: Spontaneous
  Country: ES (occurrence: ES)
  Receive Date: 20180511
  Receipt Date: 20180511
  Transmission Date: 20180711
  Serious: Yes (Other)
  Sender: FDA-Public Use
  Company Number: ES-ANIPHARMA-2018-ES-000044

PATIENT
  Age: 83 Year
  Sex: Male

DRUGS (7)
  1. ENZALUTAMIDE [Suspect]
     Active Substance: ENZALUTAMIDE
     Dosage: 160MG DAILY
     Dates: start: 201606, end: 201610
  2. BICALUTAMIDE. [Suspect]
     Active Substance: BICALUTAMIDE
     Route: 048
  3. VALSARTAN. [Suspect]
     Active Substance: VALSARTAN
  4. DOCETAXEL. [Suspect]
     Active Substance: DOCETAXEL
     Dosage: 75MG/M2, 7 CYCLES
     Dates: start: 201611, end: 201703
  5. METFORMIN [Suspect]
     Active Substance: METFORMIN HYDROCHLORIDE
     Route: 048
  6. LEUPROLIDE ACETATE. [Suspect]
     Active Substance: LEUPROLIDE ACETATE
  7. CYCLOPHOSPHAMIDE. [Suspect]
     Active Substance: CYCLOPHOSPHAMIDE
     Dosage: 100MG DAILY
     Dates: start: 201705, end: 201801

REACTIONS (6)
  - Atrial fibrillation [Unknown]
  - Metastasis [Unknown]
  - Adenocarcinoma [Unknown]
  - Pain [Unknown]
  - Breakthrough pain [Unknown]
  - Anaemia [Unknown]

NARRATIVE: CASE EVENT DATE: 2010
